FAERS Safety Report 4439096-X (Version None)
Quarter: 2004Q3

REPORT INFORMATION
  Report Type: 
  Country: None (occurrence: None)
  Receive Date: 20040901
  Receipt Date: 20040823
  Transmission Date: 20050211
  Serious: Yes (Hospitalization)
  Sender: FDA-Public Use
  Company Number: PHHO2004FR11814

PATIENT
  Age: 60 Year
  Sex: Male
  Weight: 71 kg

DRUGS (1)
  1. CYCLOSPORINE [Suspect]
     Dates: start: 20040715

REACTIONS (3)
  - BLOOD CREATININE INCREASED [None]
  - CYST DRAINAGE [None]
  - LYMPHOCELE [None]
